FAERS Safety Report 12211341 (Version 6)
Quarter: 2020Q1

REPORT INFORMATION
  Report Type: Spontaneous
  Country: US (occurrence: US)
  Receive Date: 20160325
  Receipt Date: 20200228
  Transmission Date: 20200409
  Serious: Yes (Other)
  Sender: FDA-Public Use
  Company Number: US-PFIZER INC-2016169994

PATIENT
  Age: 35 Year
  Sex: Male

DRUGS (7)
  1. TESTOSTERONE. [Concomitant]
     Active Substance: TESTOSTERONE
     Dosage: UNK
  2. LYRICA [Suspect]
     Active Substance: PREGABALIN
     Indication: BACK PAIN
  3. LYRICA [Suspect]
     Active Substance: PREGABALIN
     Indication: NEUROPATHY PERIPHERAL
     Dosage: 100 MG, 3X/DAY
     Route: 048
     Dates: start: 200908
  4. LYRICA [Suspect]
     Active Substance: PREGABALIN
     Indication: SPINAL DISORDER
  5. CLONAZEPAM. [Concomitant]
     Active Substance: CLONAZEPAM
     Indication: SEIZURE
     Dosage: UNK
  6. TYLENOL WITH CODEINE [Concomitant]
     Active Substance: ACETAMINOPHEN\CODEINE PHOSPHATE
     Dosage: 1 DF, 4X/DAY
     Route: 048
  7. LYRICA [Suspect]
     Active Substance: PREGABALIN
     Indication: SEIZURE

REACTIONS (6)
  - Pain in jaw [Unknown]
  - Drug level decreased [Not Recovered/Not Resolved]
  - Seizure [Unknown]
  - Hyperhidrosis [Unknown]
  - Pain [Unknown]
  - Dysstasia [Unknown]

NARRATIVE: CASE EVENT DATE: 200908
